FAERS Safety Report 6467814-8 (Version None)
Quarter: 2009Q4

REPORT INFORMATION
  Report Type: 
  Country: None (occurrence: None)
  Receive Date: 20091202
  Receipt Date: 20091119
  Transmission Date: 20100525
  Serious: Yes (Other)
  Sender: FDA-Public Use
  Company Number: JP-PFIZER INC-2009296478

PATIENT
  Age: 70 Year
  Sex: Female

DRUGS (1)
  1. ALDACTONE [Suspect]
     Dosage: 25 MG DAILY
     Route: 048

REACTIONS (1)
  - NEPHROTIC SYNDROME [None]
